FAERS Safety Report 5671008 (Version 6)
Quarter: 2019Q2

REPORT INFORMATION
  Report Type: Spontaneous
  Country: DE (occurrence: DE)
  Receive Date: 20041020
  Receipt Date: 20190523
  Transmission Date: 20190711
  Serious: Yes (Death, Other)
  Sender: FDA-Public Use
  Company Number: PHNU2004DE03481

PATIENT
  Age: 67 Year
  Sex: Male
  Weight: 48.5 kg

DRUGS (5)
  1. TEGRETAL [Suspect]
     Active Substance: CARBAMAZEPINE
     Indication: POST-TRAUMATIC EPILEPSY
     Dosage: 400 MG, QD
     Route: 048
     Dates: start: 1976
  2. MYLEPSIN [Concomitant]
     Indication: PRODUCT USED FOR UNKNOWN INDICATION
     Dosage: 2 DF, QD
     Route: 048
     Dates: start: 1956
  3. COAPROVEL [Concomitant]
     Active Substance: HYDROCHLOROTHIAZIDE\IRBESARTAN
     Indication: PRODUCT USED FOR UNKNOWN INDICATION
     Route: 065
  4. HYDROCHLOROTHIAZIDE. [Suspect]
     Active Substance: HYDROCHLOROTHIAZIDE
     Indication: PRODUCT USED FOR UNKNOWN INDICATION
     Dosage: 12.5 MG, QD
     Route: 065
     Dates: start: 2003
  5. ATACAND [Interacting]
     Active Substance: CANDESARTAN CILEXETIL
     Indication: PRODUCT USED FOR UNKNOWN INDICATION
     Dosage: 16 MG, QD
     Route: 065
     Dates: start: 2003

REACTIONS (13)
  - Stress [Unknown]
  - Electroencephalogram abnormal [Not Recovered/Not Resolved]
  - Hypertension [Unknown]
  - Death [Fatal]
  - Glaucoma [Unknown]
  - Post procedural complication [Unknown]
  - Chronic obstructive pulmonary disease [Unknown]
  - Nightmare [Recovering/Resolving]
  - Prostatic disorder [Not Recovered/Not Resolved]
  - Osteoporosis [Unknown]
  - Emphysema [Unknown]
  - Depression [Not Recovered/Not Resolved]
  - Hyponatraemia [Recovering/Resolving]

NARRATIVE: CASE EVENT DATE: 2000
